FAERS Safety Report 15761208 (Version 3)
Quarter: 2019Q3

REPORT INFORMATION
  Report Type: Spontaneous
  Country: US (occurrence: US)
  Receive Date: 20181226
  Receipt Date: 20190710
  Transmission Date: 20191004
  Serious: Yes (Other)
  Sender: FDA-Public Use
  Company Number: US-PFIZER INC-2018098619

PATIENT
  Age: 78 Year
  Sex: Female

DRUGS (3)
  1. SYNTHROID [Concomitant]
     Active Substance: LEVOTHYROXINE SODIUM
     Dosage: UNK UNK, DAILY (50 DAILY)
     Dates: start: 2006
  2. GENOTROPIN [Concomitant]
     Active Substance: SOMATROPIN
     Indication: HORMONE REPLACEMENT THERAPY
     Dosage: UNK UNK, DAILY (.8 DAILY)
     Dates: start: 2005
  3. PREMARIN [Suspect]
     Active Substance: ESTROGENS, CONJUGATED
     Indication: HORMONE REPLACEMENT THERAPY
     Dosage: 0.6 MG, 1X/DAY
     Route: 048
     Dates: start: 1973

REACTIONS (6)
  - Joint injury [Not Recovered/Not Resolved]
  - Fatigue [Unknown]
  - Limb injury [Not Recovered/Not Resolved]
  - Pain [Unknown]
  - Back pain [Not Recovered/Not Resolved]
  - Road traffic accident [Not Recovered/Not Resolved]

NARRATIVE: CASE EVENT DATE: 20181106
